FAERS Safety Report 16207373 (Version 2)
Quarter: 2019Q2

REPORT INFORMATION
  Report Type: Spontaneous
  Country: JP (occurrence: JP)
  Receive Date: 20190417
  Receipt Date: 20190604
  Transmission Date: 20190711
  Serious: Yes (Hospitalization)
  Sender: FDA-Public Use
  Company Number: JP-009507513-1904JPN001488J

PATIENT
  Age: 61 Year
  Sex: Male
  Weight: 82 kg

DRUGS (9)
  1. KEYTRUDA [Suspect]
     Active Substance: PEMBROLIZUMAB
     Dosage: 200 MILLIGRAM, EVERY 4 WEEKS
     Route: 041
     Dates: start: 20190314, end: 20190314
  2. CARBOPLATIN. [Suspect]
     Active Substance: CARBOPLATIN
     Indication: NON-SMALL CELL LUNG CANCER
     Dosage: AUC6 (710MG), EVERY 4 WEEKS
     Route: 041
     Dates: start: 20190111, end: 20190111
  3. CARBOPLATIN. [Suspect]
     Active Substance: CARBOPLATIN
     Dosage: AUC4, EVERY 4 WEEKS
     Route: 041
     Dates: start: 20190314, end: 20190314
  4. KEYTRUDA [Suspect]
     Active Substance: PEMBROLIZUMAB
     Indication: NON-SMALL CELL LUNG CANCER
     Dosage: 200 MILLIGRAM, EVERY 4 WEEKS
     Route: 041
     Dates: start: 20190111, end: 20190208
  5. KEYTRUDA [Suspect]
     Active Substance: PEMBROLIZUMAB
     Dosage: 200 MILLIGRAM, EVERY 4 WEEKS
     Route: 041
     Dates: start: 20190509
  6. PACLITAXEL. [Suspect]
     Active Substance: PACLITAXEL
     Dosage: 165 MILLIGRAM, QW
     Route: 041
     Dates: start: 20190208, end: 20190208
  7. PACLITAXEL. [Suspect]
     Active Substance: PACLITAXEL
     Indication: NON-SMALL CELL LUNG CANCER
     Dosage: 200 MILLIGRAM, QW
     Route: 041
     Dates: start: 20190111, end: 20190111
  8. CARBOPLATIN. [Suspect]
     Active Substance: CARBOPLATIN
     Dosage: AUC5 (590MG), EVERY 4 WEEKS
     Route: 041
     Dates: start: 20190208, end: 20190208
  9. PACLITAXEL. [Suspect]
     Active Substance: PACLITAXEL
     Dosage: 165 MILLIGRAM, QW
     Route: 041
     Dates: start: 20190314, end: 20190325

REACTIONS (4)
  - Inappropriate schedule of product administration [Unknown]
  - Neutrophil count decreased [Recovered/Resolved]
  - Platelet count decreased [Recovered/Resolved]
  - Anaemia [Recovered/Resolved]

NARRATIVE: CASE EVENT DATE: 20190125
